FAERS Safety Report 19378006 (Version 1)
Quarter: 2021Q2

REPORT INFORMATION
  Report Type: Spontaneous
  Country: DE (occurrence: DE)
  Receive Date: 20210604
  Receipt Date: 20210604
  Transmission Date: 20210717
  Serious: Yes (Hospitalization)
  Sender: FDA-Public Use
  Company Number: DE-AUROBINDO-AUR-APL-2021-022986

PATIENT
  Age: 71 Year
  Sex: Male

DRUGS (5)
  1. BEVACIZUMAB. [Suspect]
     Active Substance: BEVACIZUMAB
     Indication: PRODUCT USED FOR UNKNOWN INDICATION
     Dosage: UNK (ACCORDING TO THE SCHEME, INJECTION / INFUSION SOLUTION)
     Route: 065
  2. 5?FLUOROURACIL [Suspect]
     Active Substance: FLUOROURACIL
     Indication: PRODUCT USED FOR UNKNOWN INDICATION
     Dosage: UNK (ACCORDING TO THE SCHEME, INJECTION / INFUSION SOLUTION)
     Route: 065
  3. IRINOTECAN [Suspect]
     Active Substance: IRINOTECAN
     Indication: PRODUCT USED FOR UNKNOWN INDICATION
     Dosage: UNK (ACCORDING TO THE SCHEME, INJECTION / INFUSION SOLUTION)
     Route: 065
  4. METAMIZOLE [Concomitant]
     Active Substance: METAMIZOLE
     Indication: PRODUCT USED FOR UNKNOWN INDICATION
     Dosage: UNK (IF NECESSARY, DROPS)
     Route: 065
  5. PREGABALIN. [Concomitant]
     Active Substance: PREGABALIN
     Indication: PRODUCT USED FOR UNKNOWN INDICATION
     Dosage: 25 MILLIGRAM (1?0?1?0, CAPSULES)
     Route: 065

REACTIONS (1)
  - Dyspnoea [Not Recovered/Not Resolved]

NARRATIVE: CASE EVENT DATE: 20210219
